FAERS Safety Report 8581401-7 (Version None)
Quarter: 2012Q3

REPORT INFORMATION
  Report Type: 
  Country: None (occurrence: None)
  Receive Date: 20120727
  Receipt Date: 20120702
  Transmission Date: 20120928
  Serious: Yes (Hospitalization, Other)
  Sender: FDA-Public Use
  Company Number: ADE12-071

PATIENT

DRUGS (1)
  1. HEPARIN SODIUM [Suspect]
     Indication: CATHETERISATION CARDIAC
     Dosage: 38,000 UNITS, ONCE, IV
     Route: 042
     Dates: start: 20120425

REACTIONS (2)
  - CATHETER SITE HAEMATOMA [None]
  - OVERDOSE [None]
